FAERS Safety Report 11299651 (Version 1)
Quarter: 2015Q3

REPORT INFORMATION
  Report Type: Spontaneous
  Country: US (occurrence: US)
  Receive Date: 20150722
  Receipt Date: 20150722
  Transmission Date: 20151125
  Serious: No
  Sender: FDA-Public Use
  Company Number: US-ELI_LILLY_AND_COMPANY-US201302004460

PATIENT
  Sex: Female

DRUGS (1)
  1. HUMATROPE [Suspect]
     Active Substance: SOMATROPIN
     Indication: BLOOD GROWTH HORMONE
     Dosage: 0.2 MG, QD
     Dates: end: 201212

REACTIONS (5)
  - Dizziness [Unknown]
  - Malaise [Unknown]
  - Drug ineffective [Recovered/Resolved]
  - Joint swelling [Unknown]
  - Feeling abnormal [Unknown]
